FAERS Safety Report 9041393 (Version 1)
Quarter: 2013Q1

REPORT INFORMATION
  Report Type: Report from Study
  Country: US (occurrence: US)
  Receive Date: 20130129
  Receipt Date: 20130129
  Transmission Date: 20140127
  Serious: No
  Sender: FDA-Public Use
  Company Number: US-ABBOTT-12P-163-0901488-00

PATIENT
  Sex: Male
  Weight: 99.88 kg

DRUGS (5)
  1. HUMIRA 40 MG/0.8 ML PEN [Suspect]
     Indication: SPONDYLOARTHROPATHY
     Dates: start: 201111
  2. HYDROCODONE [Concomitant]
     Indication: PAIN
  3. AMITRIPTYLINE [Concomitant]
     Indication: DEPRESSION
  4. CYCLOBENZAPRINE [Concomitant]
     Indication: MUSCLE SPASMS
  5. CELEBREX [Concomitant]
     Indication: SPONDYLOARTHROPATHY

REACTIONS (2)
  - Off label use [Not Recovered/Not Resolved]
  - Injection site inflammation [Not Recovered/Not Resolved]
